FAERS Safety Report 7219912-9 (Version None)
Quarter: 2011Q1

REPORT INFORMATION
  Report Type: 
  Country: None (occurrence: None)
  Receive Date: 20110111
  Receipt Date: 20110106
  Transmission Date: 20110831
  Serious: Yes (Life-Threatening, Hospitalization, Other)
  Sender: FDA-Public Use
  Company Number: PHHY2010FR73831

PATIENT
  Sex: Female
  Weight: 78 kg

DRUGS (4)
  1. ZOMETA [Suspect]
     Indication: METASTASES TO BONE
     Dosage: 4 MG, QMO
     Dates: start: 20050101, end: 20101015
  2. ARIMIDEX [Concomitant]
     Indication: METASTASES TO BONE
     Dosage: UNK
     Route: 048
     Dates: start: 20090201
  3. HERCEPTIN [Concomitant]
     Indication: METASTASES TO BONE
     Dosage: UNK
     Dates: start: 20091001
  4. ZOMETA [Suspect]
     Indication: BREAST CANCER METASTATIC
     Dosage: 4 MG, QMO
     Dates: start: 20080301, end: 20101013

REACTIONS (14)
  - EYELID OEDEMA [None]
  - OEDEMA PERIPHERAL [None]
  - ANGIOEDEMA [None]
  - DRUG HYPERSENSITIVITY [None]
  - WEIGHT INCREASED [None]
  - MALAISE [None]
  - RESPIRATORY DISORDER [None]
  - SOMNOLENCE [None]
  - FACE OEDEMA [None]
  - DYSPNOEA [None]
  - OSTEONECROSIS OF JAW [None]
  - LOCALISED OEDEMA [None]
  - PRURITUS [None]
  - PARAESTHESIA ORAL [None]
